FAERS Safety Report 15431241 (Version 1)
Quarter: 2018Q3

REPORT INFORMATION
  Report Type: Spontaneous
  Country: US (occurrence: US)
  Receive Date: 20180926
  Receipt Date: 20180926
  Transmission Date: 20181010
  Serious: No
  Sender: FDA-Public Use
  Company Number: US-ALLERGAN-1833226US

PATIENT
  Age: 9 Year
  Sex: Male

DRUGS (1)
  1. ZENPEP [Suspect]
     Active Substance: PANCRELIPASE AMYLASE\PANCRELIPASE LIPASE\PANCRELIPASE PROTEASE
     Indication: PANCREATIC FAILURE
     Dosage: 10,000 UNITS LIPASE 3 X DAY SPRINKLED OVER FOOD
     Route: 048

REACTIONS (3)
  - Gastrointestinal wall thickening [Unknown]
  - Abdominal pain [Unknown]
  - Crying [Unknown]
